FAERS Safety Report 9570572 (Version 1)
Quarter: 2013Q4

REPORT INFORMATION
  Report Type: Spontaneous
  Country: US (occurrence: US)
  Receive Date: 20131001
  Receipt Date: 20131001
  Transmission Date: 20140711
  Serious: Yes (Hospitalization, Other)
  Sender: FDA-Public Use
  Company Number: US-AMGEN-USASP2013067649

PATIENT
  Age: 76 Year
  Sex: Female

DRUGS (6)
  1. PROLIA [Suspect]
     Indication: OSTEOPOROSIS POSTMENOPAUSAL
     Dosage: UNK
     Route: 065
  2. LISINOPRIL [Concomitant]
  3. PRAVASTATIN [Concomitant]
  4. NEXIUM                             /01479302/ [Concomitant]
  5. SPIRIVA [Concomitant]
  6. CARAFATE [Concomitant]

REACTIONS (1)
  - Femur fracture [Unknown]
